FAERS Safety Report 18570377 (Version 1)
Quarter: 2020Q4

REPORT INFORMATION
  Report Type: Report from Study
  Country: US (occurrence: US)
  Receive Date: 20201202
  Receipt Date: 20201202
  Transmission Date: 20210114
  Serious: Yes (Hospitalization)
  Sender: FDA-Public Use
  Company Number: US-GW PHARMA-201812USGW0656

PATIENT

DRUGS (17)
  1. SODIUM FLUORIDE. [Concomitant]
     Active Substance: SODIUM FLUORIDE
     Indication: NUTRITIONAL SUPPLEMENTATION
     Dosage: 0.55 MILLIGRAM, QD
     Route: 048
     Dates: start: 20160729
  2. EPIDIOLEX [Suspect]
     Active Substance: CANNABIDIOL
     Dosage: 21 MG/KG, 298.2 MILLIGRAM, QD
     Route: 048
     Dates: start: 20181203, end: 20181214
  3. KEPPRA [Concomitant]
     Active Substance: LEVETIRACETAM
     Dosage: 400 MILLILITER, BID
     Route: 048
     Dates: start: 20181219, end: 20181220
  4. DEPAKOTE [Concomitant]
     Active Substance: DIVALPROEX SODIUM
     Dosage: 250 MG, BID
     Dates: start: 20181214, end: 20181217
  5. DEPAKOTE [Concomitant]
     Active Substance: DIVALPROEX SODIUM
     Dosage: 375 UNK
     Dates: start: 20181218
  6. DEPAKOTE [Concomitant]
     Active Substance: DIVALPROEX SODIUM
     Indication: TUBEROUS SCLEROSIS COMPLEX
     Dosage: 375 MILLIGRAM, BID
     Route: 048
     Dates: start: 20171031, end: 20181107
  7. DEPAKOTE [Concomitant]
     Active Substance: DIVALPROEX SODIUM
     Dosage: 350 MILLIGRAM, BID
     Route: 048
     Dates: start: 20181108, end: 20181127
  8. DEPAKOTE [Concomitant]
     Active Substance: DIVALPROEX SODIUM
     Dosage: 375 MILLIGRAM, BID
     Route: 048
     Dates: start: 20181204, end: 20181213
  9. EPIDIOLEX [Suspect]
     Active Substance: CANNABIDIOL
     Indication: TUBEROUS SCLEROSIS COMPLEX
     Dosage: 25MG/KG, 355 MILLIGRAM, QD
     Route: 048
     Dates: start: 20181022, end: 20181203
  10. BANZEL [Concomitant]
     Active Substance: RUFINAMIDE
     Indication: TUBEROUS SCLEROSIS COMPLEX
     Dosage: 320 MILLIGRAM, BID
     Route: 048
     Dates: start: 20160323
  11. DIASTAT ACUDIAL [Concomitant]
     Active Substance: DIAZEPAM
     Indication: SEIZURE
     Dosage: 10 MILLIGRAM, PRN
  12. PLACEBO [Suspect]
     Active Substance: UNSPECIFIED INGREDIENT
     Indication: TUBEROUS SCLEROSIS COMPLEX
     Dosage: 50 MG/KG, 710 MILLIGRAM, QD
     Route: 048
     Dates: start: 20180702, end: 20181022
  13. KEPPRA [Concomitant]
     Active Substance: LEVETIRACETAM
     Indication: TUBEROUS SCLEROSIS COMPLEX
     Dosage: 600 MILLIGRAM, BID
     Route: 048
     Dates: start: 20160330, end: 20181218
  14. KEPPRA [Concomitant]
     Active Substance: LEVETIRACETAM
     Dosage: 300 MILLIGRAM BID
     Route: 048
     Dates: start: 20181231, end: 20190113
  15. DEPAKOTE [Concomitant]
     Active Substance: DIVALPROEX SODIUM
     Dosage: 250 MILLIGRAM, BID
     Route: 048
     Dates: start: 20181128, end: 20181203
  16. KEPPRA [Concomitant]
     Active Substance: LEVETIRACETAM
     Dosage: 400 MILLIGRAM, BID
     Dates: start: 20181221, end: 20181230
  17. KEPPRA [Concomitant]
     Active Substance: LEVETIRACETAM
     Dosage: 300 MILLIGRAM BID
     Route: 048
     Dates: start: 20190114

REACTIONS (1)
  - Platelet count decreased [Recovered/Resolved]

NARRATIVE: CASE EVENT DATE: 20181022
